FAERS Safety Report 21996212 (Version 2)
Quarter: 2023Q2

REPORT INFORMATION
  Report Type: Spontaneous
  Country: US (occurrence: US)
  Receive Date: 20230215
  Receipt Date: 20230606
  Transmission Date: 20230721
  Serious: No
  Sender: FDA-Public Use
  Company Number: US-BRISTOL-MYERS SQUIBB COMPANY-2023-022517

PATIENT
  Age: 66 Year
  Sex: Female
  Weight: 63.5 kg

DRUGS (2)
  1. LENALIDOMIDE [Suspect]
     Active Substance: LENALIDOMIDE
     Indication: Plasma cell myeloma
     Dosage: DAILY ON DAYS 1-28 OF A 28 DAY CYCLE
     Route: 048
     Dates: start: 20221001
  2. IRON [Suspect]
     Active Substance: IRON
     Indication: Product used for unknown indication

REACTIONS (2)
  - Heart rate increased [Recovered/Resolved]
  - Breath odour [Not Recovered/Not Resolved]
